FAERS Safety Report 5454110-0 (Version None)
Quarter: 2007Q3

REPORT INFORMATION
  Report Type: 
  Country: None (occurrence: None)
  Receive Date: 20070917
  Receipt Date: 20070709
  Transmission Date: 20080115
  Serious: Yes (Other)
  Sender: FDA-Public Use
  Company Number: US-ASTRAZENECA-2006UW09070

PATIENT
  Age: 48 Year
  Sex: Male

DRUGS (6)
  1. SEROQUEL [Suspect]
     Indication: BIPOLAR DISORDER
     Dosage: 25 MG TO 200 MG
     Route: 048
     Dates: start: 20020901, end: 20030201
  2. SEROQUEL [Suspect]
     Indication: DEPRESSION
     Dosage: 25 MG TO 200 MG
     Route: 048
     Dates: start: 20020901, end: 20030201
  3. RISPERDAL [Suspect]
     Indication: BIPOLAR DISORDER
     Dosage: 1 TO 3 MG
     Dates: start: 20040101
  4. RISPERDAL [Suspect]
     Indication: DEPRESSION
     Dosage: 1 TO 3 MG
     Dates: start: 20040101
  5. ZYPREXA [Suspect]
     Indication: BIPOLAR DISORDER
     Dates: start: 20031001, end: 20031201
  6. ZYPREXA [Suspect]
     Indication: DEPRESSION
     Dates: start: 20031001, end: 20031201

REACTIONS (1)
  - PANCREATITIS [None]
